FAERS Safety Report 16361204 (Version 3)
Quarter: 2019Q2

REPORT INFORMATION
  Report Type: Spontaneous
  Country: PT (occurrence: PT)
  Receive Date: 20190528
  Receipt Date: 20190606
  Transmission Date: 20190711
  Serious: Yes (Hospitalization, Other)
  Sender: FDA-Public Use
  Company Number: PT-MYLANLABS-2019M1048568

PATIENT
  Age: 78 Year
  Sex: Male

DRUGS (1)
  1. CIPROFLOXACIN. [Suspect]
     Active Substance: CIPROFLOXACIN
     Indication: URINARY TRACT INFECTION
     Dosage: UNK UNK, QW
     Route: 065

REACTIONS (18)
  - Actinomycotic skin infection [Unknown]
  - Skin lesion [Unknown]
  - Hyperaemia [Unknown]
  - Condition aggravated [Unknown]
  - Odynophagia [Unknown]
  - Cough [Unknown]
  - Rash generalised [Unknown]
  - Rash macular [Recovering/Resolving]
  - Bacterial infection [Unknown]
  - Pharyngeal erythema [Recovering/Resolving]
  - Superinfection bacterial [Unknown]
  - Mouth ulceration [Unknown]
  - Fatigue [Unknown]
  - Pyrexia [Unknown]
  - Rash maculo-papular [Unknown]
  - Pruritus [Unknown]
  - Systemic inflammatory response syndrome [Unknown]
  - Toxic epidermal necrolysis [Unknown]
